FAERS Safety Report 8155661-0 (Version None)
Quarter: 2012Q1

REPORT INFORMATION
  Report Type: 
  Country: None (occurrence: None)
  Receive Date: 20120222
  Receipt Date: 20120220
  Transmission Date: 20120608
  Serious: No
  Sender: FDA-Public Use
  Company Number: US-PFIZER INC-2012044711

PATIENT
  Sex: Male
  Weight: 97.959 kg

DRUGS (17)
  1. DOCUSATE [Concomitant]
     Dosage: UNK
  2. SIMVASTATIN [Concomitant]
     Dosage: UNK
  3. SPIRIVA [Concomitant]
     Dosage: UNK
  4. CLINDAMYCIN [Concomitant]
     Dosage: UNK
  5. NEXIUM [Concomitant]
     Dosage: UNK
  6. GABAPENTIN [Concomitant]
     Dosage: UNK
  7. TIZANIDINE [Concomitant]
     Dosage: UNK
  8. NASONEX [Concomitant]
     Dosage: UNK
  9. CHANTIX [Suspect]
     Dosage: UNK
     Route: 048
     Dates: start: 20111201
  10. MINOCYCLINE [Concomitant]
     Dosage: UNK
  11. CELEBREX [Concomitant]
     Dosage: UNK
  12. FLEXERIL [Concomitant]
     Dosage: UNK
  13. SYNTHROID [Concomitant]
     Dosage: UNK
  14. ATENOLOL [Concomitant]
     Dosage: UNK
  15. CHANTIX [Suspect]
     Indication: SMOKING CESSATION THERAPY
     Dosage: 0.5 MG, 1X/DAY
     Route: 048
  16. LORATADINE [Concomitant]
     Dosage: UNK
  17. COMBIVENT [Concomitant]
     Dosage: UNK

REACTIONS (3)
  - DEPRESSED MOOD [None]
  - BLOOD TRIGLYCERIDES INCREASED [None]
  - DRUG INEFFECTIVE [None]
